FAERS Safety Report 5275776-4 (Version None)
Quarter: 2007Q1

REPORT INFORMATION
  Report Type: 
  Country: None (occurrence: None)
  Receive Date: 20070326
  Receipt Date: 20070316
  Transmission Date: 20070707
  Serious: Yes (Hospitalization)
  Sender: FDA-Public Use
  Company Number: KR-GLAXOSMITHKLINE-B0460807A

PATIENT
  Age: 48 Year
  Sex: Female

DRUGS (3)
  1. LAMOTRIGINE [Suspect]
     Route: 048
     Dates: start: 20070126, end: 20070214
  2. CLONAZEPAM [Concomitant]
  3. RANITIDINE [Concomitant]

REACTIONS (20)
  - ALANINE AMINOTRANSFERASE INCREASED [None]
  - BLOOD ALBUMIN DECREASED [None]
  - CONJUNCTIVAL HYPERAEMIA [None]
  - LYMPHOCYTE COUNT DECREASED [None]
  - MEAN PLATELET VOLUME DECREASED [None]
  - MUCOUS MEMBRANE DISORDER [None]
  - NEUTROPHIL PERCENTAGE INCREASED [None]
  - NITRITE URINE PRESENT [None]
  - PLATELET COUNT INCREASED [None]
  - PROTEIN TOTAL DECREASED [None]
  - PROTHROMBIN TIME PROLONGED [None]
  - RASH [None]
  - RASH PAPULAR [None]
  - SKIN EROSION [None]
  - SKIN EXFOLIATION [None]
  - SPECIFIC GRAVITY URINE DECREASED [None]
  - STEVENS-JOHNSON SYNDROME [None]
  - STOMATITIS [None]
  - URETHRAL DISORDER [None]
  - WHITE BLOOD CELL COUNT INCREASED [None]
